FAERS Safety Report 23202983 (Version 3)
Quarter: 2024Q1

REPORT INFORMATION
  Report Type: Spontaneous
  Country: DE (occurrence: DE)
  Receive Date: 20231120
  Receipt Date: 20240122
  Transmission Date: 20240409
  Serious: Yes (Other)
  Sender: FDA-Public Use
  Company Number: DE-002147023-NVSC2023DE245859

PATIENT
  Sex: Male
  Weight: 42 kg

DRUGS (4)
  1. KYMRIAH [Suspect]
     Active Substance: TISAGENLECLEUCEL
     Indication: Metastases to central nervous system
     Dosage: 4.6X106 CAR-T CELLS/ KG, ONCE/SINGLE
     Route: 042
     Dates: start: 20220719, end: 20220719
  2. KYMRIAH [Suspect]
     Active Substance: TISAGENLECLEUCEL
     Indication: Stem cell transplant
     Dosage: UNK, ONCE/SINGLE
     Route: 042
  3. KYMRIAH [Suspect]
     Active Substance: TISAGENLECLEUCEL
     Indication: Minimal residual disease
  4. KYMRIAH [Suspect]
     Active Substance: TISAGENLECLEUCEL
     Indication: Acute lymphocytic leukaemia

REACTIONS (5)
  - Cytokine release syndrome [Recovered/Resolved]
  - Renal failure [Recovering/Resolving]
  - Metastases to central nervous system [Recovering/Resolving]
  - BK virus infection [Recovering/Resolving]
  - Off label use [Unknown]

NARRATIVE: CASE EVENT DATE: 20220726
